FAERS Safety Report 7224360-1 (Version None)
Quarter: 2011Q1

REPORT INFORMATION
  Report Type: 
  Country: None (occurrence: None)
  Receive Date: 20110113
  Receipt Date: 20110112
  Transmission Date: 20110831
  Serious: Yes (Hospitalization)
  Sender: FDA-Public Use
  Company Number: FR-JNJFOC-20101202505

PATIENT
  Sex: Male

DRUGS (13)
  1. MORPHINE SULFATE [Concomitant]
     Indication: BACK PAIN
     Route: 048
     Dates: start: 20101022
  2. SPIRIVA [Concomitant]
     Indication: PRODUCT USED FOR UNKNOWN INDICATION
  3. NORVIR [Suspect]
     Indication: HIV INFECTION
     Route: 048
     Dates: start: 20100819
  4. TRUVADA [Suspect]
     Indication: HIV INFECTION
     Route: 048
     Dates: start: 20100819
  5. PERFALGAN [Suspect]
     Indication: BACK PAIN
     Route: 042
     Dates: start: 20101022, end: 20101022
  6. PROFENID [Suspect]
     Indication: BACK PAIN
     Route: 042
     Dates: start: 20101022, end: 20101022
  7. BACTRIM DS [Concomitant]
     Indication: PNEUMOCYSTIS JIROVECI PNEUMONIA
     Route: 048
     Dates: start: 20100731
  8. PARACETAMOL [Suspect]
     Indication: BACK PAIN
     Route: 048
     Dates: start: 20101023, end: 20101027
  9. XATRAL [Concomitant]
     Indication: DYSURIA
     Dates: start: 20100819
  10. IMOVANE [Concomitant]
     Indication: PRODUCT USED FOR UNKNOWN INDICATION
     Dates: start: 20100801
  11. TOPALGIC [Suspect]
     Indication: BACK PAIN
     Route: 042
     Dates: start: 20101022, end: 20101022
  12. INNOVAR [Concomitant]
     Indication: PRODUCT USED FOR UNKNOWN INDICATION
  13. PREZISTA [Suspect]
     Indication: HIV INFECTION
     Route: 048
     Dates: start: 20100819

REACTIONS (1)
  - CYTOLYTIC HEPATITIS [None]
